FAERS Safety Report 7587247-0 (Version None)
Quarter: 2011Q3

REPORT INFORMATION
  Report Type: 
  Country: None (occurrence: None)
  Receive Date: 20110701
  Receipt Date: 20110627
  Transmission Date: 20111222
  Serious: Yes (Hospitalization)
  Sender: FDA-Public Use
  Company Number: IE-AMGEN-IRLSP2011032537

PATIENT
  Sex: Male

DRUGS (5)
  1. ANTINEOPLASTIC AGENTS [Concomitant]
  2. MOTILIUM                           /00498201/ [Concomitant]
  3. SEPTRA [Concomitant]
  4. KEPPRA [Concomitant]
  5. NEUPOGEN [Suspect]
     Indication: CHEMOTHERAPY
     Dosage: 30 MILLION UNIT, UNK
     Route: 058
     Dates: start: 20110624

REACTIONS (1)
  - INFECTION [None]
